FAERS Safety Report 6974408-4 (Version None)
Quarter: 2010Q3

REPORT INFORMATION
  Report Type: 
  Country: None (occurrence: None)
  Receive Date: 20100909
  Receipt Date: 20100908
  Transmission Date: 20110219
  Serious: Yes (Death)
  Sender: FDA-Public Use
  Company Number: PHHY2010IE59415

PATIENT

DRUGS (1)
  1. TASIGNA [Suspect]

REACTIONS (1)
  - DEATH [None]
